FAERS Safety Report 10553979 (Version 2)
Quarter: 2014Q4

REPORT INFORMATION
  Report Type: Spontaneous
  Country: US (occurrence: US)
  Receive Date: 20141030
  Receipt Date: 20141030
  Transmission Date: 20150529
  Serious: No
  Sender: FDA-Public Use
  Company Number: US-EISAI MEDICAL RESEARCH-E2007-01796-SPO-US

PATIENT
  Age: 28 Year
  Sex: Male

DRUGS (6)
  1. POTIGA [Concomitant]
     Active Substance: EZOGABINE
     Indication: EPILEPSY
     Dosage: 300 MG DAILY
     Route: 048
     Dates: start: 20121018
  2. DEPAKOTE ER [Concomitant]
     Active Substance: DIVALPROEX SODIUM
     Indication: EPILEPSY
     Dosage: 1000 MG DAILY
     Route: 048
  3. KEPPRA XR [Concomitant]
     Active Substance: LEVETIRACETAM
     Indication: EPILEPSY
     Dosage: 3500 MG DAILY
     Route: 048
  4. FYCOMPA [Suspect]
     Active Substance: PERAMPANEL
     Indication: EPILEPSY
     Route: 048
     Dates: start: 20140305, end: 20140428
  5. FELBATOL [Concomitant]
     Active Substance: FELBAMATE
     Indication: EPILEPSY
     Dosage: 4200 MG DAILY
     Route: 048
  6. SEROQUEL [Concomitant]
     Active Substance: QUETIAPINE FUMARATE
     Indication: BEHAVIOURAL THERAPY
     Dosage: 500 MG DAILY
     Route: 048

REACTIONS (2)
  - Irritability [Recovered/Resolved]
  - Aggression [Recovered/Resolved]

NARRATIVE: CASE EVENT DATE: 20140315
